FAERS Safety Report 8043038-8 (Version None)
Quarter: 2011Q4

REPORT INFORMATION
  Report Type: 
  Country: None (occurrence: None)
  Receive Date: 20111202
  Receipt Date: 20110720
  Transmission Date: 20120403
  Serious: Yes (Life-Threatening, Hospitalization, Other)
  Sender: FDA-Public Use
  Company Number: 2011SP034061

PATIENT
  Age: 31 Year
  Sex: Female

DRUGS (3)
  1. CENTRUM [Concomitant]
  2. NUVARING [Suspect]
     Indication: CONTRACEPTION
     Dosage: 1 DF; QM; VAG
     Route: 067
     Dates: start: 20020101, end: 20110701
  3. CITALOPRAM HYDROBROMIDE [Concomitant]

REACTIONS (1)
  - PULMONARY EMBOLISM [None]
